FAERS Safety Report 9748578 (Version 2)
Quarter: 2013Q4

REPORT INFORMATION
  Report Type: Report from Study
  Country: US (occurrence: US)
  Receive Date: 20131212
  Receipt Date: 20131212
  Transmission Date: 20140711
  Serious: Yes (Other)
  Sender: FDA-Public Use
  Company Number: US-SANOFI-AVENTIS-2013SA080277

PATIENT
  Age: 37 Year
  Sex: Female
  Weight: 68.95 kg

DRUGS (5)
  1. AUBAGIO [Suspect]
     Indication: MULTIPLE SCLEROSIS
     Dosage: TAKEN FROM- 3 MONTHS AGO.
     Route: 048
     Dates: start: 20130620
  2. LIPITOR [Concomitant]
     Indication: BLOOD CHOLESTEROL
     Route: 065
     Dates: start: 201306
  3. CLARITIN [Concomitant]
     Indication: HYPERSENSITIVITY
     Route: 065
  4. ADDERALL [Concomitant]
     Indication: FATIGUE
     Route: 065
     Dates: start: 201306
  5. NEURONTIN [Concomitant]
     Indication: NEURALGIA
     Route: 065
     Dates: start: 201306

REACTIONS (4)
  - Pneumonia [Unknown]
  - Irritability [Unknown]
  - Diarrhoea [Not Recovered/Not Resolved]
  - Alopecia [Unknown]
